FAERS Safety Report 25340953 (Version 1)
Quarter: 2025Q2

REPORT INFORMATION
  Report Type: Spontaneous
  Country: EG (occurrence: EG)
  Receive Date: 20250521
  Receipt Date: 20250521
  Transmission Date: 20250717
  Serious: Yes (Life-Threatening, Other)
  Sender: HIKMA
  Company Number: EG-HIKMA PHARMACEUTICALS USA INC.-EG-H14001-25-04441

PATIENT
  Age: 49 Year
  Sex: Female
  Weight: 71 kg

DRUGS (6)
  1. DOXORUBICIN [Suspect]
     Active Substance: DOXORUBICIN
     Indication: Colon cancer
     Dosage: 87.5 MILLIGRAM, 3W
     Route: 041
  2. DOXORUBICIN [Suspect]
     Active Substance: DOXORUBICIN
     Dosage: 87.5 MILLIGRAM, 3W, CYCLE 2
     Route: 041
     Dates: start: 20241008
  3. CYCLOPHOSPHAMIDE [Suspect]
     Active Substance: CYCLOPHOSPHAMIDE
     Indication: Colon cancer
     Dosage: 875 MILLIGRAM, 3W
     Route: 041
  4. CYCLOPHOSPHAMIDE [Suspect]
     Active Substance: CYCLOPHOSPHAMIDE
     Dosage: 875 MILLIGRAM, 3W, CYCLE 2
     Route: 041
     Dates: start: 20241008
  5. VINCRISTINE [Suspect]
     Active Substance: VINCRISTINE
     Indication: Colon cancer
     Dosage: 2 MILLIGRAM, 3W
     Route: 041
  6. VINCRISTINE [Suspect]
     Active Substance: VINCRISTINE
     Dosage: 2 MILLIGRAM, 3W, CYCLE 2
     Route: 041
     Dates: start: 20241008

REACTIONS (3)
  - Neuropathy peripheral [Not Recovered/Not Resolved]
  - Arthralgia [Not Recovered/Not Resolved]
  - Alopecia [Not Recovered/Not Resolved]

NARRATIVE: CASE EVENT DATE: 20241008
